FAERS Safety Report 14032070 (Version 1)
Quarter: 2017Q4

REPORT INFORMATION
  Report Type: Report from Study
  Country: US (occurrence: US)
  Receive Date: 20171003
  Receipt Date: 20171003
  Transmission Date: 20180321
  Serious: Yes (Other)
  Sender: FDA-Public Use
  Company Number: US-AMGEN-USASL2017146868

PATIENT
  Age: 82 Year
  Sex: Female

DRUGS (7)
  1. LOSARTAN. [Concomitant]
     Active Substance: LOSARTAN
  2. AMLODIPINE [Concomitant]
     Active Substance: AMLODIPINE BESYLATE
     Dosage: UNK
     Route: 065
     Dates: start: 2017
  3. CALCIUM [Concomitant]
     Active Substance: CALCIUM
  4. METOPROLOL. [Concomitant]
     Active Substance: METOPROLOL
  5. PROLIA [Suspect]
     Active Substance: DENOSUMAB
     Indication: OSTEOPOROSIS POSTMENOPAUSAL
     Dosage: 60 MG, Q6MO
     Route: 058
  6. VITAMINS [Concomitant]
     Active Substance: VITAMINS
  7. VITAMIN D [Concomitant]
     Active Substance: CHOLECALCIFEROL

REACTIONS (1)
  - Gastrointestinal carcinoma [Unknown]

NARRATIVE: CASE EVENT DATE: 201708
